FAERS Safety Report 19441093 (Version 1)
Quarter: 2021Q2

REPORT INFORMATION
  Report Type: Spontaneous
  Country: US (occurrence: US)
  Receive Date: 20210621
  Receipt Date: 20210621
  Transmission Date: 20210717
  Serious: No
  Sender: FDA-Public Use
  Company Number: US-TEVA-2021-US-1911992

PATIENT
  Sex: Female

DRUGS (4)
  1. HYDROCHLOROTHIAZIDE TEVA [Suspect]
     Active Substance: HYDROCHLOROTHIAZIDE
     Dosage: ONE?HALF TABLET ONCE DAILY IN THE MORNING
     Route: 065
  2. IRBESARTAN MINT [Suspect]
     Active Substance: IRBESARTAN
     Indication: HYPERTENSION
     Route: 065
  3. IRBESARTAN?SANDOZ [Suspect]
     Active Substance: IRBESARTAN
     Indication: HYPERTENSION
     Route: 065
  4. IRBESARTAN TEVA [Suspect]
     Active Substance: IRBESARTAN
     Route: 065

REACTIONS (8)
  - Dizziness [Unknown]
  - Discomfort [Unknown]
  - Swollen tongue [Unknown]
  - Feeling abnormal [Unknown]
  - Quality of life decreased [Unknown]
  - Expired product administered [Unknown]
  - Tongue discomfort [Unknown]
  - Asthenia [Unknown]
